FAERS Safety Report 10619242 (Version 2)
Quarter: 2014Q4

REPORT INFORMATION
  Report Type: Spontaneous
  Country: FR (occurrence: None)
  Receive Date: 20141126
  Receipt Date: 20141229
  Transmission Date: 20150529
  Serious: Yes (Hospitalization, Other)
  Sender: FDA-Public Use
  Company Number: 2014-20802

PATIENT
  Age: 75 Year
  Sex: Female

DRUGS (3)
  1. BETADINE (POVIDONE-IODINE) [Concomitant]
  2. EYLEA [Suspect]
     Active Substance: AFLIBERCEPT
     Indication: PRODUCT USED FOR UNKNOWN INDICATION
  3. OFLOXACIN. [Concomitant]
     Active Substance: OFLOXACIN

REACTIONS (2)
  - Diarrhoea haemorrhagic [None]
  - Abdominal pain [None]

NARRATIVE: CASE EVENT DATE: 20141112
